FAERS Safety Report 5225596-1 (Version None)
Quarter: 2006Q4

REPORT INFORMATION
  Report Type: 
  Country: None (occurrence: None)
  Receive Date: 20061201
  Receipt Date: 20060816
  Transmission Date: 20070319
  Serious: Yes (Hospitalization)
  Sender: FDA-Public Use
  Company Number: US200608003572

PATIENT
  Age: 46 Year
  Sex: Female

DRUGS (5)
  1. CYMBALTA [Suspect]
     Indication: MIGRAINE
     Dosage: 60 MG, UNK, UNK
     Dates: start: 20060620
  2. TOPAMAX [Concomitant]
  3. VERAPAMIL [Concomitant]
  4. DYAZIDE [Concomitant]
  5. ESTROGENS SOL/INJ [Concomitant]

REACTIONS (10)
  - ANAEMIA [None]
  - BLOOD POTASSIUM DECREASED [None]
  - CHOLELITHIASIS [None]
  - DIARRHOEA [None]
  - FEELING ABNORMAL [None]
  - ILEUS [None]
  - IRRITABLE BOWEL SYNDROME [None]
  - PNEUMONIA [None]
  - POLYPECTOMY [None]
  - PYREXIA [None]
